FAERS Safety Report 5537687-6 (Version None)
Quarter: 2007Q4

REPORT INFORMATION
  Report Type: 
  Country: None (occurrence: None)
  Receive Date: 20071207
  Receipt Date: 20071120
  Transmission Date: 20080405
  Serious: No
  Sender: FDA-Public Use
  Company Number: US-JNJFOC-20071108796

PATIENT
  Age: 26 Year
  Sex: Male
  Weight: 92.08 kg

DRUGS (1)
  1. INVEGA [Suspect]
     Indication: SCHIZOPHRENIA
     Route: 048

REACTIONS (1)
  - RESTLESSNESS [None]
